FAERS Safety Report 24816403 (Version 1)
Quarter: 2025Q1

REPORT INFORMATION
  Report Type: Spontaneous
  Country: US (occurrence: US)
  Receive Date: 20250107
  Receipt Date: 20250107
  Transmission Date: 20250408
  Serious: Yes (Other)
  Sender: MERCK
  Company Number: US-009507513-2501USA000200

PATIENT
  Age: 68 Year
  Sex: Male

DRUGS (2)
  1. KEYTRUDA [Suspect]
     Active Substance: PEMBROLIZUMAB
     Indication: Metastases to lung
  2. AXITINIB [Concomitant]
     Active Substance: AXITINIB
     Indication: Metastases to lung

REACTIONS (1)
  - Autoimmune disorder [Recovering/Resolving]
